FAERS Safety Report 16029981 (Version 7)
Quarter: 2019Q2

REPORT INFORMATION
  Report Type: Spontaneous
  Country: DE (occurrence: DE)
  Receive Date: 20190304
  Receipt Date: 20190521
  Transmission Date: 20190711
  Serious: Yes (Other)
  Sender: FDA-Public Use
  Company Number: DE-VIIV HEALTHCARE LIMITED-DE2019GSK036900

PATIENT

DRUGS (2)
  1. KIVEXA [Suspect]
     Active Substance: ABACAVIR SULFATE\LAMIVUDINE
     Indication: HIV INFECTION
     Dosage: UNK
  2. REYATAZ [Suspect]
     Active Substance: ATAZANAVIR SULFATE
     Indication: HIV INFECTION
     Dosage: UNK

REACTIONS (11)
  - Genital haemorrhage [Unknown]
  - Fatigue [Unknown]
  - Cardiovascular symptom [Unknown]
  - Disease recurrence [Unknown]
  - Bladder pain [Unknown]
  - Suspected counterfeit product [Unknown]
  - Hepatic pain [Unknown]
  - Product complaint [Unknown]
  - Pyrexia [Unknown]
  - Nausea [Unknown]
  - Adverse drug reaction [Unknown]
